FAERS Safety Report 9962822 (Version 1)
Quarter: 2014Q1

REPORT INFORMATION
  Report Type: Report from Study
  Country: US (occurrence: US)
  Receive Date: 20140305
  Receipt Date: 20140305
  Transmission Date: 20141002
  Serious: No
  Sender: FDA-Public Use
  Company Number: US-ABBVIE-13P-163-1114061-00

PATIENT
  Age: 72 Year
  Sex: Male
  Weight: 105.78 kg

DRUGS (4)
  1. HUMIRA [Suspect]
     Indication: PSORIASIS
     Route: 058
     Dates: start: 201205
  2. VITAMINS NOS [Concomitant]
     Indication: VITAMIN SUPPLEMENTATION
  3. LABETALOL [Concomitant]
     Indication: HYPERTENSION
  4. UNKNOWN ANTIHYPERTENSIVE [Concomitant]
     Indication: HYPERTENSION

REACTIONS (1)
  - Sinusitis [Recovering/Resolving]
